FAERS Safety Report 14187022 (Version 1)
Quarter: 2017Q4

REPORT INFORMATION
  Report Type: Spontaneous
  Country: US (occurrence: US)
  Receive Date: 20171114
  Receipt Date: 20171114
  Transmission Date: 20180321
  Serious: No
  Sender: FDA-Public Use
  Company Number: US-PFIZER INC-2017488136

PATIENT
  Age: 61 Year
  Sex: Female

DRUGS (1)
  1. PREMARIN [Suspect]
     Active Substance: ESTROGENS, CONJUGATED
     Dosage: 0.625 TO 0.45,ONLY TAKING EVERY SIX DAYS, ONE PILL EVERY SIX DAYS

REACTIONS (5)
  - Fatigue [Unknown]
  - Sinus disorder [Unknown]
  - Product use issue [Unknown]
  - Hypersensitivity [Unknown]
  - Back disorder [Unknown]
